FAERS Safety Report 14568989 (Version 1)
Quarter: 2018Q1

REPORT INFORMATION
  Report Type: Spontaneous
  Country: US (occurrence: US)
  Receive Date: 20180223
  Receipt Date: 20180223
  Transmission Date: 20180509
  Serious: Yes (Disabling, Other)
  Sender: FDA-Public Use
  Company Number: US-TEVA-2018-US-864770

PATIENT
  Sex: Female

DRUGS (1)
  1. COPAXONE [Suspect]
     Active Substance: GLATIRAMER ACETATE
     Dates: start: 2012, end: 2017

REACTIONS (6)
  - Drug dose omission [Unknown]
  - Joint injury [Unknown]
  - Hysterectomy [Unknown]
  - Multiple sclerosis relapse [Unknown]
  - Walking aid user [Unknown]
  - Disability [Unknown]

NARRATIVE: CASE EVENT DATE: 2015
